FAERS Safety Report 5036408-3 (Version None)
Quarter: 2006Q2

REPORT INFORMATION
  Report Type: 
  Country: None (occurrence: None)
  Receive Date: 20060601
  Receipt Date: 20060413
  Transmission Date: 20061013
  Serious: No
  Sender: FDA-Public Use
  Company Number: US200604002394

PATIENT
  Age: 33 Year
  Sex: Female

DRUGS (3)
  1. CYMBALTA [Suspect]
     Indication: NEURALGIA
     Dosage: 30 MG
     Dates: start: 20060411
  2. PREGABALIN (PREGABALIN) [Concomitant]
  3. ALLEGRA [Concomitant]

REACTIONS (2)
  - BLISTER [None]
  - SOMNOLENCE [None]
